FAERS Safety Report 6790118-0 (Version None)
Quarter: 2010Q2

REPORT INFORMATION
  Report Type: 
  Country: None (occurrence: None)
  Receive Date: 20100624
  Receipt Date: 20100617
  Transmission Date: 20101027
  Serious: Yes (Disabling)
  Sender: FDA-Public Use
  Company Number: IN-NOVOPROD-309284

PATIENT
  Sex: Male
  Weight: 171.4 kg

DRUGS (4)
  1. INSULIN DETEMIR FLEXPEN [Suspect]
     Indication: TYPE 1 DIABETES MELLITUS
     Dosage: 38 IU, QD
     Route: 058
     Dates: start: 20100424
  2. INSULIN DETEMIR FLEXPEN [Suspect]
     Dosage: 28 IU, QD
  3. NOVORAPID FLEXPEN [Suspect]
     Indication: TYPE 1 DIABETES MELLITUS
     Dosage: 67 IU, QD
     Route: 058
     Dates: start: 20100424
  4. NOVORAPID FLEXPEN [Suspect]
     Dosage: 59 IU, QD

REACTIONS (2)
  - HYPOGLYCAEMIA [None]
  - PETIT MAL EPILEPSY [None]
